FAERS Safety Report 22399576 (Version 1)
Quarter: 2023Q2

REPORT INFORMATION
  Report Type: Spontaneous
  Country: FR (occurrence: FR)
  Receive Date: 20230602
  Receipt Date: 20230602
  Transmission Date: 20230722
  Serious: Yes (Hospitalization, Other)
  Sender: FDA-Public Use
  Company Number: FR-Zentiva-2023-ZT-011900

PATIENT
  Age: 87 Year
  Sex: Male

DRUGS (3)
  1. ABIRATERONE [Interacting]
     Active Substance: ABIRATERONE
     Indication: Prostate cancer
     Dosage: UNK
     Route: 065
  2. ALOE ARBORESCENS LEAF [Interacting]
     Active Substance: ALOE ARBORESCENS LEAF
     Indication: Product used for unknown indication
     Dosage: UNK, QD
     Route: 065
  3. DEGARELIX [Concomitant]
     Active Substance: DEGARELIX
     Indication: Prostate cancer
     Dosage: UNK
     Route: 065

REACTIONS (4)
  - Hepatotoxicity [Recovering/Resolving]
  - Hepatitis [Recovering/Resolving]
  - Herbal interaction [Recovering/Resolving]
  - Drug interaction [Recovering/Resolving]
